FAERS Safety Report 20009650 (Version 1)
Quarter: 2021Q4

REPORT INFORMATION
  Report Type: Spontaneous
  Country: US (occurrence: US)
  Receive Date: 20211029
  Receipt Date: 20211029
  Transmission Date: 20220304
  Serious: No
  Sender: FDA-Public Use
  Company Number: US-ROCHE-2944701

PATIENT
  Age: 50 Year
  Sex: Female
  Weight: 65.83 kg

DRUGS (1)
  1. OCREVUS [Suspect]
     Active Substance: OCRELIZUMAB
     Indication: Multiple sclerosis
     Dosage: YES
     Route: 042
     Dates: start: 20201206

REACTIONS (3)
  - COVID-19 [Unknown]
  - Pain [Unknown]
  - Antibody test negative [Unknown]

NARRATIVE: CASE EVENT DATE: 20210701
